FAERS Safety Report 5158230-X (Version None)
Quarter: 2006Q4

REPORT INFORMATION
  Report Type: 
  Country: None (occurrence: None)
  Receive Date: 20061121
  Receipt Date: 20061121
  Transmission Date: 20070319
  Serious: Yes (Hospitalization)
  Sender: FDA-Public Use
  Company Number: None

PATIENT
  Age: 51 Year
  Sex: Male
  Weight: 82 kg

DRUGS (16)
  1. AMIODARONE HCL [Suspect]
     Indication: ATRIAL FIBRILLATION
     Dosage: 900MG OVER 24 HOURS 37.5MG/HR IV DRIP
     Route: 041
     Dates: start: 20060516, end: 20060517
  2. AMIODARONE HCL [Suspect]
     Indication: POST PROCEDURAL COMPLICATION
     Dosage: 900MG OVER 24 HOURS 37.5MG/HR IV DRIP
     Route: 041
     Dates: start: 20060516, end: 20060517
  3. AMIODARONE HCL [Suspect]
     Indication: PROPHYLAXIS
     Dosage: 900MG OVER 24 HOURS 37.5MG/HR IV DRIP
     Route: 041
     Dates: start: 20060516, end: 20060517
  4. AMIODARONE HCL [Suspect]
     Indication: ATRIAL FIBRILLATION
     Dosage: 400 MG BID PO
     Route: 048
     Dates: start: 20060517, end: 20060519
  5. AMIODARONE HCL [Suspect]
     Indication: POST PROCEDURAL COMPLICATION
     Dosage: 400 MG BID PO
     Route: 048
     Dates: start: 20060517, end: 20060519
  6. AMIODARONE HCL [Suspect]
     Indication: PROPHYLAXIS
     Dosage: 400 MG BID PO
     Route: 048
     Dates: start: 20060517, end: 20060519
  7. D5.2NACL/KCL/MAGNESIUM [Concomitant]
  8. SODIUM NITROPRUSSIDE [Concomitant]
  9. INSULIN [Concomitant]
  10. DOBUTAMINE DRIP [Concomitant]
  11. FENTANYL DRIP [Concomitant]
  12. RANITIDINE [Concomitant]
  13. CEFAZOLIN [Concomitant]
  14. METOCLOPRAMIDE [Concomitant]
  15. FUROSEMIDE [Concomitant]
  16. EZETIMIBE [Concomitant]

REACTIONS (6)
  - ACUTE RESPIRATORY DISTRESS SYNDROME [None]
  - AGITATION [None]
  - INFECTION [None]
  - MENTAL STATUS CHANGES [None]
  - POST PROCEDURAL COMPLICATION [None]
  - RESPIRATORY FAILURE [None]
